FAERS Safety Report 15744558 (Version 1)
Quarter: 2018Q4

REPORT INFORMATION
  Report Type: Spontaneous
  Country: US (occurrence: US)
  Receive Date: 20181220
  Receipt Date: 20181220
  Transmission Date: 20190205
  Serious: No
  Sender: FDA-Public Use
  Company Number: US-BAUSCH-BL-2018-034153

PATIENT
  Sex: Female
  Weight: 58 kg

DRUGS (1)
  1. FLUOROURACIL CREAM [Suspect]
     Active Substance: FLUOROURACIL
     Indication: SKIN CANCER
     Dosage: USED IT ON TOP OF HER HAND, LEG AND FACE BEFORE GOES TO BED
     Route: 061
     Dates: start: 20180313

REACTIONS (1)
  - Off label use [Unknown]

NARRATIVE: CASE EVENT DATE: 2018
